FAERS Safety Report 18518292 (Version 2)
Quarter: 2020Q4

REPORT INFORMATION
  Report Type: Spontaneous
  Country: US (occurrence: US)
  Receive Date: 20201118
  Receipt Date: 20201221
  Transmission Date: 20210114
  Serious: Yes (Hospitalization, Other)
  Sender: FDA-Public Use
  Company Number: US-AMGEN-USASP2020183807

PATIENT

DRUGS (9)
  1. XGEVA [Suspect]
     Active Substance: DENOSUMAB
     Indication: RENAL CANCER
  2. XGEVA [Suspect]
     Active Substance: DENOSUMAB
     Indication: PROSTATE CANCER
  3. XGEVA [Suspect]
     Active Substance: DENOSUMAB
     Indication: LUNG NEOPLASM MALIGNANT
  4. XGEVA [Suspect]
     Active Substance: DENOSUMAB
     Indication: THYROID CANCER
  5. XGEVA [Suspect]
     Active Substance: DENOSUMAB
     Indication: BREAST CANCER
  6. XGEVA [Suspect]
     Active Substance: DENOSUMAB
     Indication: PANCREATIC CARCINOMA
  7. XGEVA [Suspect]
     Active Substance: DENOSUMAB
     Indication: BLADDER CANCER
  8. XGEVA [Suspect]
     Active Substance: DENOSUMAB
     Indication: PLASMA CELL MYELOMA
     Dosage: UNK
     Route: 065
  9. XGEVA [Suspect]
     Active Substance: DENOSUMAB
     Indication: MALIGNANT MELANOMA

REACTIONS (4)
  - Osteoporotic fracture [Unknown]
  - Transient ischaemic attack [Unknown]
  - Atrial fibrillation [Unknown]
  - Cerebrovascular accident [Unknown]
